FAERS Safety Report 22205923 (Version 1)
Quarter: 2023Q2

REPORT INFORMATION
  Report Type: Spontaneous
  Country: FR (occurrence: FR)
  Receive Date: 20230413
  Receipt Date: 20230413
  Transmission Date: 20230721
  Serious: Yes (Life-Threatening)
  Sender: FDA-Public Use
  Company Number: None

PATIENT
  Age: 57 Year
  Sex: Female
  Weight: 48 kg

DRUGS (3)
  1. PACLITAXEL [Suspect]
     Active Substance: PACLITAXEL
     Indication: Breast cancer
     Dosage: DOSE UNKNOWN?THIS IS THE 3RD CURE IN TOTAL
     Route: 065
     Dates: start: 20230228, end: 20230228
  2. CARBOPLATIN [Suspect]
     Active Substance: CARBOPLATIN
     Indication: Breast cancer
     Dosage: DOSE UNKNOWN?THIS IS THE 3RD CURE IN TOTAL
     Route: 065
     Dates: start: 20230228, end: 20230228
  3. KEYTRUDA [Suspect]
     Active Substance: PEMBROLIZUMAB
     Indication: Breast cancer
     Dosage: DOSE UNKNOWN?THIS IS THE 3RD CURE IN TOTAL
     Route: 065
     Dates: start: 20230228, end: 20230228

REACTIONS (2)
  - Hypovolaemic shock [Recovering/Resolving]
  - Diarrhoea [Recovering/Resolving]

NARRATIVE: CASE EVENT DATE: 20230301
